FAERS Safety Report 25174408 (Version 1)
Quarter: 2025Q2

REPORT INFORMATION
  Report Type: Spontaneous
  Country: CN (occurrence: CN)
  Receive Date: 20250408
  Receipt Date: 20250408
  Transmission Date: 20250716
  Serious: Yes (Other)
  Sender: ELI LILLY AND CO
  Company Number: CN-ELI_LILLY_AND_COMPANY-CN202503015045

PATIENT
  Age: 80 Year
  Sex: Female
  Weight: 64 kg

DRUGS (2)
  1. TERIPARATIDE [Suspect]
     Active Substance: TERIPARATIDE
     Indication: Osteoporosis postmenopausal
     Dosage: 20 UG, DAILY
     Route: 058
     Dates: start: 20250314, end: 20250314
  2. TERIPARATIDE [Suspect]
     Active Substance: TERIPARATIDE
     Indication: Lumbar vertebral fracture
     Route: 058
     Dates: start: 20250315, end: 20250315

REACTIONS (6)
  - Shock [Unknown]
  - Anaphylactic shock [Recovered/Resolved]
  - Blood pressure increased [Unknown]
  - Hypertension [Recovering/Resolving]
  - Diarrhoea [Unknown]
  - Hypophagia [Unknown]

NARRATIVE: CASE EVENT DATE: 20250314
